FAERS Safety Report 14384285 (Version 3)
Quarter: 2018Q4

REPORT INFORMATION
  Report Type: Spontaneous
  Country: US (occurrence: US)
  Receive Date: 20180115
  Receipt Date: 20181105
  Transmission Date: 20190204
  Serious: No
  Sender: FDA-Public Use
  Company Number: US-PFIZER INC-2017545467

PATIENT
  Age: 12 Year
  Sex: Male

DRUGS (3)
  1. GENOTROPIN [Suspect]
     Active Substance: SOMATROPIN
     Dosage: 1.4 MG, UNK [6 DAYS A WEEK]
     Route: 058
     Dates: start: 20171129, end: 20171219
  2. DIMETAPP DM CHILDRENS COLD + COUGH [Concomitant]
     Indication: PYREXIA
     Dosage: 10 ML, AS NEEDED
     Route: 048
     Dates: start: 20171218
  3. GENOTROPIN [Suspect]
     Active Substance: SOMATROPIN
     Indication: GROWTH HORMONE DEFICIENCY
     Dosage: 1.4 MG, UNK (ONCE DAILY 6 DAYS A WEEK)
     Dates: start: 201711

REACTIONS (4)
  - Product dose omission [Unknown]
  - Pyrexia [Unknown]
  - Blood testosterone decreased [Unknown]
  - Device issue [Unknown]

NARRATIVE: CASE EVENT DATE: 201712
